FAERS Safety Report 22960896 (Version 3)
Quarter: 2024Q3

REPORT INFORMATION
  Report Type: Spontaneous
  Country: CA (occurrence: CA)
  Receive Date: 20230920
  Receipt Date: 20240812
  Transmission Date: 20241016
  Serious: Yes (Other)
  Sender: ACCORD
  Company Number: None

PATIENT
  Sex: Male

DRUGS (23)
  1. LACOSAMIDE [Suspect]
     Active Substance: LACOSAMIDE
     Indication: New onset refractory status epilepticus
     Route: 065
  2. LEVETIRACETAM [Suspect]
     Active Substance: LEVETIRACETAM
     Indication: New onset refractory status epilepticus
     Route: 065
  3. TOPIRAMATE [Suspect]
     Active Substance: TOPIRAMATE
     Indication: New onset refractory status epilepticus
     Route: 065
  4. AZATHIOPRINE [Suspect]
     Active Substance: AZATHIOPRINE
     Indication: New onset refractory status epilepticus
     Route: 065
  5. BRIVARACETAM [Suspect]
     Active Substance: BRIVARACETAM
     Indication: New onset refractory status epilepticus
     Route: 065
  6. ESLICARBAZEPINE [Suspect]
     Active Substance: ESLICARBAZEPINE
     Indication: New onset refractory status epilepticus
     Route: 048
  7. FENTANYL [Suspect]
     Active Substance: FENTANYL\FENTANYL CITRATE
     Indication: New onset refractory status epilepticus
     Route: 065
  8. KETAMINE [Suspect]
     Active Substance: KETAMINE
     Indication: New onset refractory status epilepticus
     Route: 065
  9. LAMOTRIGINE [Suspect]
     Active Substance: LAMOTRIGINE
     Indication: New onset refractory status epilepticus
     Route: 065
  10. METHYLPREDNISOLONE [Suspect]
     Active Substance: METHYLPREDNISOLONE
     Indication: New onset refractory status epilepticus
     Route: 065
  11. MIDAZOLAM [Suspect]
     Active Substance: MIDAZOLAM
     Indication: New onset refractory status epilepticus
     Route: 065
  12. PERAMPANEL [Suspect]
     Active Substance: PERAMPANEL
     Indication: New onset refractory status epilepticus
     Route: 065
  13. PHENOBARBITAL [Suspect]
     Active Substance: PHENOBARBITAL
     Indication: New onset refractory status epilepticus
     Route: 065
  14. PHENOBARBITAL [Suspect]
     Active Substance: PHENOBARBITAL
     Indication: New onset refractory status epilepticus
     Route: 065
  15. PHENYTOIN [Suspect]
     Active Substance: PHENYTOIN
     Indication: New onset refractory status epilepticus
     Route: 065
  16. PREDNISONE [Suspect]
     Active Substance: PREDNISONE
     Indication: New onset refractory status epilepticus
     Route: 065
  17. PROPOFOL [Suspect]
     Active Substance: PROPOFOL
     Indication: New onset refractory status epilepticus
     Route: 065
  18. VALPROIC ACID [Suspect]
     Active Substance: VALPROIC ACID
     Indication: New onset refractory status epilepticus
     Route: 065
  19. LACOSAMIDE [Suspect]
     Active Substance: LACOSAMIDE
     Indication: New onset refractory status epilepticus
  20. TOPIRAMATE [Suspect]
     Active Substance: TOPIRAMATE
     Indication: New onset refractory status epilepticus
  21. ACYCLOVIR [Concomitant]
     Active Substance: ACYCLOVIR
     Indication: Product used for unknown indication
     Route: 065
  22. PIPERACILLIN SODIUM\TAZOBACTAM SODIUM [Concomitant]
     Active Substance: PIPERACILLIN SODIUM\TAZOBACTAM SODIUM
     Indication: Product used for unknown indication
     Route: 065
  23. VANCOMYCIN [Concomitant]
     Active Substance: VANCOMYCIN
     Indication: Product used for unknown indication
     Route: 065

REACTIONS (4)
  - Condition aggravated [Unknown]
  - Drug ineffective [Unknown]
  - New onset refractory status epilepticus [Unknown]
  - Product use in unapproved indication [Unknown]
